FAERS Safety Report 7978113-7 (Version None)
Quarter: 2011Q4

REPORT INFORMATION
  Report Type: 
  Country: None (occurrence: None)
  Receive Date: 20111212
  Receipt Date: 20111212
  Transmission Date: 20120403
  Serious: No
  Sender: FDA-Public Use
  Company Number: None

PATIENT
  Sex: Female
  Weight: 105.4 kg

DRUGS (1)
  1. SUNITINIB MALATE [Suspect]
     Dosage: 1400MG
     Dates: end: 20111122

REACTIONS (2)
  - SKIN INFECTION [None]
  - HYPERTRIGLYCERIDAEMIA [None]
